FAERS Safety Report 4279435-6 (Version None)
Quarter: 2004Q1

REPORT INFORMATION
  Report Type: 
  Country: None (occurrence: None)
  Receive Date: 20040127
  Receipt Date: 20030306
  Transmission Date: 20041129
  Serious: Yes (Hospitalization)
  Sender: FDA-Public Use
  Company Number: WAES 0303USA00626

PATIENT
  Age: 78 Year
  Sex: Male
  Weight: 91 kg

DRUGS (14)
  1. VICODIN [Concomitant]
  2. ZYLOPRIM [Concomitant]
  3. XANAX [Concomitant]
     Dates: start: 20000101, end: 20030101
  4. ASPIRIN [Concomitant]
  5. ASPIRIN [Concomitant]
  6. LIPITOR [Concomitant]
  7. CARISOPRODOL [Concomitant]
  8. VASOTEC [Concomitant]
  9. MICRONASE [Concomitant]
  10. PREVACID [Concomitant]
  11. GLUCOPHAGE [Concomitant]
  12. CENTRUM [Concomitant]
  13. VIOXX [Suspect]
     Indication: ARTHRITIS
     Route: 048
     Dates: end: 20001031
  14. ULTRAM [Concomitant]

REACTIONS (14)
  - ANAEMIA [None]
  - BUNDLE BRANCH BLOCK RIGHT [None]
  - COLONIC POLYP [None]
  - CONSTIPATION [None]
  - GASTRIC ULCER HAEMORRHAGE [None]
  - GASTRITIS [None]
  - GASTRITIS EROSIVE [None]
  - GASTROINTESTINAL DISORDER [None]
  - HAEMORRHOIDS [None]
  - HIATUS HERNIA [None]
  - ILEUS [None]
  - INCISIONAL HERNIA [None]
  - RENAL FAILURE [None]
  - SMALL INTESTINAL OBSTRUCTION [None]
